FAERS Safety Report 9263083 (Version 2)
Quarter: 2013Q3

REPORT INFORMATION
  Report Type: Spontaneous
  Country: GB (occurrence: GB)
  Receive Date: 20130430
  Receipt Date: 20130828
  Transmission Date: 20140515
  Serious: Yes (Other)
  Sender: FDA-Public Use
  Company Number: GB-ROCHE-1219643

PATIENT
  Age: 71 Year
  Sex: Female

DRUGS (2)
  1. ROACTEMRA [Suspect]
     Indication: RHEUMATOID ARTHRITIS
     Route: 042
     Dates: start: 20121213
  2. PREDNISONE [Concomitant]
     Route: 048

REACTIONS (2)
  - Barrett^s oesophagus [Unknown]
  - Oesophageal carcinoma [Unknown]
